FAERS Safety Report 24568311 (Version 4)
Quarter: 2024Q4

REPORT INFORMATION
  Report Type: Report from Study
  Country: JP (occurrence: JP)
  Receive Date: 20241031
  Receipt Date: 20241216
  Transmission Date: 20250115
  Serious: Yes (Hospitalization)
  Sender: ROCHE
  Company Number: JP-CHUGAI-2022029938

PATIENT
  Age: 36 Year
  Sex: Female
  Weight: 39 kg

DRUGS (17)
  1. ENSPRYNG [Suspect]
     Active Substance: SATRALIZUMAB-MWGE
     Indication: Neuromyelitis optica spectrum disorder
     Route: 058
     Dates: start: 20210614, end: 20210712
  2. ENSPRYNG [Suspect]
     Active Substance: SATRALIZUMAB-MWGE
     Route: 058
     Dates: start: 20210810
  3. PREDNISOLONE [Concomitant]
     Active Substance: PREDNISOLONE
     Indication: Neuromyelitis optica spectrum disorder
     Dosage: 12MG/DAY, PERORAL AGENT
     Route: 050
     Dates: start: 20210614, end: 20210711
  4. PREDNISOLONE [Concomitant]
     Active Substance: PREDNISOLONE
     Dosage: 11MG/DAY, PERORAL AGENT
     Route: 050
     Dates: start: 20210712, end: 20210809
  5. PREDNISOLONE [Concomitant]
     Active Substance: PREDNISOLONE
     Dosage: 10MG/DAY PERORAL AGENT
     Route: 050
     Dates: start: 20210810, end: 20211128
  6. PREDNISOLONE [Concomitant]
     Active Substance: PREDNISOLONE
     Dosage: 9MG/DAY, PERORAL AGENT
     Route: 050
     Dates: start: 20211129, end: 20220123
  7. PREDNISOLONE [Concomitant]
     Active Substance: PREDNISOLONE
     Dosage: 8MG/DAY, PERORAL AGENT
     Route: 050
     Dates: start: 20220124, end: 20220220
  8. PREDNISOLONE [Concomitant]
     Active Substance: PREDNISOLONE
     Dosage: 8MG/DAY, PERORAL AGENT
     Route: 050
     Dates: start: 20220221, end: 20220321
  9. PREDNISOLONE [Concomitant]
     Active Substance: PREDNISOLONE
     Dosage: 8MG/DAY, PERORAL AGENT
     Route: 050
     Dates: start: 20220322, end: 20220417
  10. PREDNISOLONE [Concomitant]
     Active Substance: PREDNISOLONE
     Dosage: 8MG/DAY, PERORAL AGENT
     Route: 050
     Dates: start: 20220418, end: 20220807
  11. PREDNISOLONE [Concomitant]
     Active Substance: PREDNISOLONE
     Dosage: 8MG/DAY, PERORAL AGENT
     Route: 050
     Dates: start: 20220808, end: 20221030
  12. PREDNISOLONE [Concomitant]
     Active Substance: PREDNISOLONE
     Dosage: 8MG/DAY, PERORAL AGENT
     Route: 050
     Dates: start: 20221031, end: 20221225
  13. PREDNISOLONE [Concomitant]
     Active Substance: PREDNISOLONE
     Dosage: 8MG/DAY, PERORAL AGENT
     Route: 050
     Dates: start: 20221226, end: 20230416
  14. PREDNISOLONE [Concomitant]
     Active Substance: PREDNISOLONE
     Dosage: 8MG/DAY, PERORAL AGENT
     Route: 050
     Dates: start: 20230417, end: 20230604
  15. MIROGABALIN BESYLATE [Concomitant]
     Active Substance: MIROGABALIN BESYLATE
     Indication: Tonic convulsion
     Dosage: 5 MG, AFTER DINNER
     Route: 050
     Dates: start: 20210104
  16. LOXOPROFEN [Concomitant]
     Active Substance: LOXOPROFEN
     Indication: Pain
  17. BETAMETHASONE [Concomitant]
     Active Substance: BETAMETHASONE
     Dosage: 9 MG/DAY PREORAL AGENT
     Route: 048
     Dates: end: 20220123

REACTIONS (6)
  - Pneumonia bacterial [Recovered/Resolved]
  - Influenza [Recovered/Resolved]
  - Adenomyosis [Not Recovered/Not Resolved]
  - Oedema peripheral [Recovered/Resolved]
  - Pneumonia haemophilus [Recovered/Resolved]
  - Intermenstrual bleeding [Recovered/Resolved]

NARRATIVE: CASE EVENT DATE: 20210901
